FAERS Safety Report 20797773 (Version 1)
Quarter: 2022Q2

REPORT INFORMATION
  Report Type: Spontaneous
  Country: US (occurrence: None)
  Receive Date: 20220506
  Receipt Date: 20220506
  Transmission Date: 20220721
  Serious: No
  Sender: FDA-Public Use
  Company Number: None

PATIENT
  Age: 90 Year
  Sex: Female

DRUGS (1)
  1. TOBRAMYCIN [Suspect]
     Active Substance: TOBRAMYCIN
     Indication: Bronchiectasis
     Dosage: 300MG TWICE DAILY INHALED
     Route: 055
     Dates: start: 20220331

REACTIONS (2)
  - Hospitalisation [None]
  - Unevaluable event [None]

NARRATIVE: CASE EVENT DATE: 20220404
